FAERS Safety Report 5763939-0 (Version None)
Quarter: 2008Q2

REPORT INFORMATION
  Report Type: 
  Country: None (occurrence: None)
  Receive Date: 20080606
  Receipt Date: 20080606
  Transmission Date: 20081010
  Serious: Yes (Other)
  Sender: FDA-Public Use
  Company Number: None

PATIENT
  Age: 49 Year
  Sex: Female
  Weight: 87.9978 kg

DRUGS (3)
  1. ABILIFY [Suspect]
     Indication: BIPOLAR DISORDER
     Dosage: ONE/TWO TABLET ONCE A DAY PO
     Route: 048
     Dates: start: 20070403, end: 20071218
  2. ABILIFY [Suspect]
     Indication: SCHIZOPHRENIA
     Dosage: ONE/TWO TABLET ONCE A DAY PO
     Route: 048
     Dates: start: 20070403, end: 20071218
  3. ABILIFY [Suspect]

REACTIONS (3)
  - AMENORRHOEA [None]
  - HYPOTHYROIDISM [None]
  - OEDEMA MOUTH [None]
